FAERS Safety Report 19642749 (Version 1)
Quarter: 2021Q3

REPORT INFORMATION
  Report Type: Report from Study
  Country: None (occurrence: CO)
  Receive Date: 20210730
  Receipt Date: 20210730
  Transmission Date: 20211014
  Serious: Yes (Hospitalization)
  Sender: FDA-Public Use
  Company Number: CO-ABBVIE-21K-036-4018181-00

PATIENT
  Age: 46 Year
  Sex: Male
  Weight: 76 kg

DRUGS (1)
  1. IMBRUVICA [Suspect]
     Active Substance: IBRUTINIB
     Indication: MANTLE CELL LYMPHOMA
     Route: 048
     Dates: start: 20210329, end: 202106

REACTIONS (1)
  - Bone marrow transplant [Recovering/Resolving]

NARRATIVE: CASE EVENT DATE: 20210626
